FAERS Safety Report 17752889 (Version 2)
Quarter: 2020Q3

REPORT INFORMATION
  Report Type: Spontaneous
  Country: US (occurrence: US)
  Receive Date: 20200506
  Receipt Date: 20200824
  Transmission Date: 20201102
  Serious: No
  Sender: FDA-Public Use
  Company Number: US-CELGENEUS-USA-20200111599

PATIENT
  Age: 64 Year
  Sex: Female

DRUGS (3)
  1. REVLIMID [Suspect]
     Active Substance: LENALIDOMIDE
     Indication: PLASMA CELL MYELOMA
     Dosage: 20 MILLIGRAM
     Route: 048
     Dates: start: 201705
  2. REVLIMID [Suspect]
     Active Substance: LENALIDOMIDE
     Dosage: 20 MILLIGRAM
     Route: 048
     Dates: start: 20170817
  3. REVLIMID [Suspect]
     Active Substance: LENALIDOMIDE
     Dosage: 10 MILLIGRAM
     Route: 048
     Dates: start: 201804

REACTIONS (9)
  - Pain in extremity [Unknown]
  - Abdominal pain upper [Unknown]
  - Diarrhoea [Unknown]
  - Abdominal pain [Unknown]
  - Somnolence [Unknown]
  - Breast pain [Unknown]
  - Facial pain [Unknown]
  - Herpes zoster [Unknown]
  - Dyspnoea [Unknown]

NARRATIVE: CASE EVENT DATE: 202004
